FAERS Safety Report 7867917-7 (Version None)
Quarter: 2011Q4

REPORT INFORMATION
  Report Type: 
  Country: None (occurrence: None)
  Receive Date: 20111028
  Receipt Date: 20111025
  Transmission Date: 20120403
  Serious: Yes (Death, Other)
  Sender: FDA-Public Use
  Company Number: PHHY2011US94482

PATIENT
  Age: 6 Year
  Sex: Male

DRUGS (5)
  1. NITROUS OXIDE [Suspect]
     Dosage: UNK UKN, UNK
  2. HYDROXYZINE [Suspect]
     Indication: SEDATION
     Dosage: UNK UKN, UNK
  3. CHLORAL HYDRATE [Suspect]
     Indication: ANALGESIC THERAPY
     Dosage: UNK UKN, UNK
  4. METHADONE HCL [Suspect]
     Dosage: UNK UKN, UNK
  5. MEPERIDINE HCL [Suspect]
     Dosage: 50MG

REACTIONS (5)
  - TOXICITY TO VARIOUS AGENTS [None]
  - WRONG DRUG ADMINISTERED [None]
  - UNRESPONSIVE TO STIMULI [None]
  - SOMNOLENCE [None]
  - DRUG LEVEL ABOVE THERAPEUTIC [None]
